FAERS Safety Report 15141925 (Version 1)
Quarter: 2018Q3

REPORT INFORMATION
  Report Type: Spontaneous
  Country: US (occurrence: US)
  Receive Date: 20180713
  Receipt Date: 20180713
  Transmission Date: 20181010
  Serious: No
  Sender: FDA-Public Use
  Company Number: US-ASTELLAS-2017US032967

PATIENT
  Age: 85 Year
  Sex: Female

DRUGS (2)
  1. MYRBETRIQ [Suspect]
     Active Substance: MIRABEGRON
     Indication: PRODUCT USED FOR UNKNOWN INDICATION
     Route: 065
     Dates: start: 20170424, end: 20170427
  2. MYRBETRIQ [Suspect]
     Active Substance: MIRABEGRON
     Dosage: UNK, (CUT TABLE INTO HALF) UNKNOWN FREQ.
     Route: 048
     Dates: start: 20170428

REACTIONS (6)
  - Dizziness [Recovering/Resolving]
  - Asthenia [Recovering/Resolving]
  - Wrong technique in product usage process [Unknown]
  - Malaise [Recovering/Resolving]
  - Infection [Unknown]
  - Intentional product misuse [Unknown]
